FAERS Safety Report 9792219 (Version 3)
Quarter: 2014Q1

REPORT INFORMATION
  Report Type: Report from Study
  Country: DE (occurrence: DE)
  Receive Date: 20140102
  Receipt Date: 20140214
  Transmission Date: 20141002
  Serious: Yes (Death, Hospitalization)
  Sender: FDA-Public Use
  Company Number: DE-BEH-2013035070

PATIENT
  Age: 77 Year
  Sex: Female
  Weight: 75 kg

DRUGS (5)
  1. PRIVIGEN [Suspect]
     Indication: SELECTIVE IGG SUBCLASS DEFICIENCY
     Dosage: MIN. INFUSION RATE 1.2 ML/MIN
     Dates: start: 20130104, end: 20130104
  2. PRIVIGEN [Suspect]
     Dosage: MIN. INFUSION RATE 1.2 ML/MIN
     Dates: start: 20130201, end: 20130201
  3. PRIVIGEN [Suspect]
     Dosage: MIN. INFUSION RATE 1.2 ML /MIN
     Dates: start: 20130301, end: 20130301
  4. OMEPRAZOLE [Concomitant]
  5. CORTICOSTEROIDS [Concomitant]

REACTIONS (5)
  - Death [Fatal]
  - Anaphylactic reaction [Unknown]
  - Dyspnoea [Unknown]
  - Chills [Unknown]
  - Oxygen saturation decreased [Unknown]
